FAERS Safety Report 23026431 (Version 1)
Quarter: 2023Q4

REPORT INFORMATION
  Report Type: Spontaneous
  Country: US (occurrence: US)
  Receive Date: 20231004
  Receipt Date: 20231004
  Transmission Date: 20240109
  Serious: Yes (Hospitalization)
  Sender: FDA-Public Use
  Company Number: US-drreddys-LIT/USA/23/0179227

PATIENT

DRUGS (1)
  1. AMLODIPINE MALEATE [Suspect]
     Active Substance: AMLODIPINE MALEATE
     Indication: Product used for unknown indication
     Dosage: ACCIDENTALLY INGESTED ORAL AMLODIPINE 40MG WHICH WAS GREATER THAN THE THRESHOLD VALUE
     Route: 048

REACTIONS (2)
  - Hypotension [Unknown]
  - Accidental overdose [Unknown]
